FAERS Safety Report 11875365 (Version 1)
Quarter: 2015Q4

REPORT INFORMATION
  Report Type: Spontaneous
  Country: US (occurrence: US)
  Receive Date: 20151229
  Receipt Date: 20151229
  Transmission Date: 20160305
  Serious: No
  Sender: FDA-Public Use
  Company Number: US-PFIZER INC-2015467943

PATIENT
  Age: 55 Year
  Sex: Female

DRUGS (1)
  1. DUAVEE [Suspect]
     Active Substance: BAZEDOXIFENE ACETATE\ESTROGENS, CONJUGATED
     Indication: HOT FLUSH
     Dosage: 1 DF, UNK
     Route: 048
     Dates: start: 20150820

REACTIONS (2)
  - Breast pain [Recovering/Resolving]
  - Breast engorgement [Recovering/Resolving]

NARRATIVE: CASE EVENT DATE: 2015
